FAERS Safety Report 25435463 (Version 1)
Quarter: 2025Q2

REPORT INFORMATION
  Report Type: Spontaneous
  Country: US (occurrence: None)
  Receive Date: 20250606
  Receipt Date: 20250606
  Transmission Date: 20250716
  Serious: No
  Sender: FDA-CTU
  Company Number: None

PATIENT

DRUGS (2)
  1. OFEV [Suspect]
     Active Substance: NINTEDANIB
  2. OFEV [Suspect]
     Active Substance: NINTEDANIB

REACTIONS (3)
  - Diarrhoea [None]
  - Rash [None]
  - Adverse drug reaction [None]

NARRATIVE: CASE EVENT DATE: 20250605
